FAERS Safety Report 7507142-2 (Version None)
Quarter: 2011Q2

REPORT INFORMATION
  Report Type: 
  Country: None (occurrence: None)
  Receive Date: 20110526
  Receipt Date: 20080618
  Transmission Date: 20111010
  Serious: Yes (Death, Hospitalization, Other)
  Sender: FDA-Public Use
  Company Number: US-BAYER-200826007NA

PATIENT
  Age: 77 Year
  Sex: Male
  Weight: 82 kg

DRUGS (19)
  1. ACETYLSALICYLIC ACID SRT [Concomitant]
     Dosage: 81MG , DAILY
     Route: 048
  2. LASIX [Concomitant]
     Dosage: 40 MG, DAILY
     Route: 048
  3. ALLOPURINOL [Concomitant]
     Dosage: 300 MG, DAILY
     Route: 048
  4. REGULAR INSULIN [Concomitant]
     Dosage: UNK
     Route: 042
     Dates: start: 20050926, end: 20050926
  5. AMOXICILLIN [Concomitant]
     Indication: UPPER RESPIRATORY TRACT INFECTION
     Dosage: 500 MG, THREE TIMES DAILY
     Route: 048
     Dates: start: 20050729
  6. LISINOPRIL [Concomitant]
     Dosage: 20 MG, ONE AND 1/2 TABLETS TWICE DAILY
     Route: 048
  7. TRASYLOL [Suspect]
     Indication: CORONARY ARTERY BYPASS
     Dosage: 200 ML PUMP PRIME
     Route: 042
     Dates: start: 20050926, end: 20050926
  8. TRASYLOL [Suspect]
     Indication: STERNOTOMY
  9. REGULAR INSULIN [Concomitant]
     Indication: DIABETES MELLITUS
     Dosage: 12 UNITS IN THE MORNING AND 8 UNITS IN THE EVENING
     Route: 058
  10. REGULAR INSULIN [Concomitant]
     Dosage: 45 UNITS EVERY MORNING AND 35 UNITS EVERY EVENING NPH INSULIN
     Route: 058
  11. PLAVIX [Concomitant]
     Dosage: 75 MG, DAILY
     Route: 048
  12. LORATADINE [Concomitant]
     Indication: MULTIPLE ALLERGIES
     Dosage: 10 MG, DAILY
     Route: 048
     Dates: start: 20050729
  13. TRASYLOL [Suspect]
     Indication: AORTIC VALVE REPLACEMENT
  14. TRASYLOL [Suspect]
     Indication: ADHESIOLYSIS
  15. HEPARIN [Concomitant]
     Dosage: UNK
     Route: 042
     Dates: start: 20050926, end: 20050926
  16. ANCEF [Concomitant]
     Dosage: 2 GMS
     Route: 042
     Dates: start: 20050926, end: 20050926
  17. AMIODARONE HCL [Concomitant]
     Dosage: 150ML
     Route: 042
     Dates: start: 20050926, end: 20050926
  18. MUCOMYST [Concomitant]
     Dosage: UNK
     Route: 042
     Dates: start: 20050921
  19. HYDROXYUREA [Concomitant]
     Dosage: 500 MG, 2 CAPSULES DAILY
     Route: 048

REACTIONS (6)
  - RENAL FAILURE [None]
  - DEATH [None]
  - RENAL INJURY [None]
  - ANXIETY [None]
  - INJURY [None]
  - EMOTIONAL DISTRESS [None]
